FAERS Safety Report 7396406 (Version 10)
Quarter: 2014Q2

REPORT INFORMATION
  Report Type: Report from Study
  Country: CA (occurrence: CA)
  Receive Date: 20100521
  Receipt Date: 20140410
  Transmission Date: 20141212
  Serious: Yes (Other)
  Sender: FDA-Public Use
  Company Number: PHHY2010CA30840

PATIENT
  Sex: Female

DRUGS (4)
  1. SANDOSTATIN LAR [Suspect]
     Indication: NEUROENDOCRINE CARCINOMA
     Dosage: 30 MG, EVERY 3 WEEKS
     Route: 030
     Dates: start: 20090731
  2. SANDOSTATIN LAR [Suspect]
     Dosage: 30 MG, EVERY 4 WEEKS
     Route: 030
  3. SANDOSTATIN LAR [Suspect]
     Dosage: 30 MG, EVERY 3 WEEKS
     Route: 030
  4. RADIATION [Concomitant]
     Dosage: UNK UKN, UNK

REACTIONS (7)
  - Weight decreased [Unknown]
  - Blood pressure increased [Unknown]
  - Feeling cold [Unknown]
  - Gastrointestinal disorder [Unknown]
  - Fatigue [Unknown]
  - Gastrointestinal pain [Unknown]
  - Blood thyroid stimulating hormone increased [Unknown]
